FAERS Safety Report 11363149 (Version 1)
Quarter: 2015Q3

REPORT INFORMATION
  Report Type: Report from Study
  Country: MX (occurrence: MX)
  Receive Date: 20150811
  Receipt Date: 20150811
  Transmission Date: 20151125
  Serious: Yes (Other)
  Sender: FDA-Public Use
  Company Number: PHHY2013MX147561

PATIENT
  Age: 72 Year
  Sex: Female

DRUGS (1)
  1. GLIVEC [Suspect]
     Active Substance: IMATINIB MESYLATE
     Indication: GASTROINTESTINAL STROMAL TUMOUR
     Dosage: 400 MG
     Route: 065
     Dates: start: 201304, end: 201309

REACTIONS (5)
  - Metastases to peritoneum [Unknown]
  - Headache [Unknown]
  - Malignant neoplasm progression [Unknown]
  - Pelvic neoplasm [Unknown]
  - Gastric disorder [Unknown]

NARRATIVE: CASE EVENT DATE: 20150423
